FAERS Safety Report 14753935 (Version 1)
Quarter: 2018Q2

REPORT INFORMATION
  Report Type: Spontaneous
  Country: DE (occurrence: DE)
  Receive Date: 20180412
  Receipt Date: 20180412
  Transmission Date: 20180711
  Serious: Yes (Other)
  Sender: FDA-Public Use
  Company Number: PHHY2018DE064332

PATIENT
  Age: 51 Year
  Sex: Female
  Weight: 64 kg

DRUGS (1)
  1. OFLOXACIN. [Suspect]
     Active Substance: OFLOXACIN
     Indication: CYSTITIS
     Dosage: 500 MG, Q8H (3X500MG)
     Route: 048
     Dates: start: 20090501

REACTIONS (13)
  - Arthralgia [Unknown]
  - Swelling [Not Recovered/Not Resolved]
  - Angina pectoris [Unknown]
  - Food intolerance [Recovered/Resolved]
  - Parosmia [Recovered/Resolved]
  - Pain [Not Recovered/Not Resolved]
  - Tendon pain [Unknown]
  - Dyspnoea [Unknown]
  - Tendon disorder [Not Recovered/Not Resolved]
  - Photophobia [Recovered/Resolved]
  - Cardiac discomfort [Recovered/Resolved]
  - Movement disorder [Not Recovered/Not Resolved]
  - Tendonitis [Recovered/Resolved]

NARRATIVE: CASE EVENT DATE: 2009
